FAERS Safety Report 4665736-6 (Version None)
Quarter: 2005Q2

REPORT INFORMATION
  Report Type: 
  Country: None (occurrence: None)
  Receive Date: 20050519
  Receipt Date: 20040915
  Transmission Date: 20051028
  Serious: Yes (Other)
  Sender: FDA-Public Use
  Company Number: BW-2004-BP-08517BP

PATIENT
  Sex: Female

DRUGS (3)
  1. VIRAMUNE [Suspect]
     Indication: HIV INFECTION
     Dates: start: 20040130
  2. DIDANOSINE [Suspect]
     Indication: HIV INFECTION
     Dates: start: 20040130
  3. ZIDOVUDINE [Suspect]
     Indication: HIV INFECTION
     Dates: start: 20040130

REACTIONS (5)
  - BLOOD AMYLASE INCREASED [None]
  - DYSURIA [None]
  - LIPASE INCREASED [None]
  - POLYDIPSIA [None]
  - POLYURIA [None]
